FAERS Safety Report 11240634 (Version 3)
Quarter: 2015Q3

REPORT INFORMATION
  Report Type: Spontaneous
  Country: JP (occurrence: JP)
  Receive Date: 20150706
  Receipt Date: 20150828
  Transmission Date: 20151125
  Serious: Yes (Life-Threatening, Other)
  Sender: FDA-Public Use
  Company Number: JP-PFIZER INC-2015152465

PATIENT
  Age: 14 Day
  Sex: Female
  Weight: 2.6 kg

DRUGS (7)
  1. ANCARON [Suspect]
     Active Substance: AMIODARONE HYDROCHLORIDE
     Indication: TACHYCARDIA
     Dosage: 6.5 MG, 2X/DAY
     Route: 065
     Dates: start: 20150424
  2. ANCARON [Suspect]
     Active Substance: AMIODARONE HYDROCHLORIDE
     Indication: TACHYCARDIA
     Dosage: AT A DOSE OF 6 MCG/KG/MIN VIA CENTRAL VEIN
     Route: 042
     Dates: start: 20150422, end: 20150423
  3. ANCARON [Suspect]
     Active Substance: AMIODARONE HYDROCHLORIDE
     Dosage: 45 MCG/KG/MIN
     Route: 042
     Dates: start: 20150424, end: 20150425
  4. ANCARON [Suspect]
     Active Substance: AMIODARONE HYDROCHLORIDE
     Dosage: AT AN INCREASED DOSE OF 9 MCG/KG/MIN
     Route: 042
     Dates: start: 20150423, end: 20150424
  5. PALUX [Concomitant]
     Active Substance: ALPROSTADIL
     Indication: PULMONARY EMBOLISM
     Dosage: UNK
     Dates: start: 20150410, end: 20150518
  6. ALDACTONE [Concomitant]
     Active Substance: SPIRONOLACTONE
     Indication: OEDEMA
     Dosage: UNK
     Dates: start: 20150422
  7. LASIX [Concomitant]
     Active Substance: FUROSEMIDE
     Indication: OEDEMA
     Dosage: UNK
     Dates: start: 20150422

REACTIONS (1)
  - Gasping syndrome [Recovering/Resolving]

NARRATIVE: CASE EVENT DATE: 20150424
